FAERS Safety Report 9401886 (Version 1)
Quarter: 2013Q3

REPORT INFORMATION
  Report Type: Spontaneous
  Country: IT (occurrence: IT)
  Receive Date: 20130716
  Receipt Date: 20130716
  Transmission Date: 20140515
  Serious: Yes (Hospitalization)
  Sender: FDA-Public Use
  Company Number: IT-ROCHE-1249252

PATIENT
  Age: 61 Year
  Sex: Male

DRUGS (7)
  1. SOMATROPIN [Suspect]
     Indication: BLOOD GROWTH HORMONE DECREASED
     Route: 058
     Dates: start: 20020101, end: 20130410
  2. TESTOSTERONE ENANTATE [Suspect]
     Indication: SECONDARY HYPOGONADISM
     Dosage: CYCLES
     Route: 030
     Dates: start: 20010101, end: 20130307
  3. SIMVASTATIN [Concomitant]
  4. COLECALCIFEROL [Concomitant]
  5. CORTONE [Concomitant]
  6. LEVOTHYROXINE SODIUM [Concomitant]
  7. CALCIUM CARBONATE [Concomitant]

REACTIONS (1)
  - Prostate cancer [Recovered/Resolved with Sequelae]
